FAERS Safety Report 7030043-3 (Version None)
Quarter: 2010Q4

REPORT INFORMATION
  Report Type: 
  Country: None (occurrence: None)
  Receive Date: 20101001
  Receipt Date: 20100921
  Transmission Date: 20110411
  Serious: Yes (Hospitalization)
  Sender: FDA-Public Use
  Company Number: DSA_43998_2010

PATIENT
  Sex: Female

DRUGS (2)
  1. CARDIZEM CD [Suspect]
     Indication: PRODUCT USED FOR UNKNOWN INDICATION
     Dosage: (DF), (DF)
  2. CARDIZEM [Suspect]
     Indication: PRODUCT USED FOR UNKNOWN INDICATION
     Dosage: (30 MG QID, VIA GASTRIC TUBE)
     Dates: start: 20100401

REACTIONS (2)
  - HOSPITALISATION [None]
  - PNEUMONIA ASPIRATION [None]
